FAERS Safety Report 16015135 (Version 5)
Quarter: 2020Q3

REPORT INFORMATION
  Report Type: Spontaneous
  Country: JP (occurrence: JP)
  Receive Date: 20190227
  Receipt Date: 20200909
  Transmission Date: 20201102
  Serious: Yes (Hospitalization, Other)
  Sender: FDA-Public Use
  Company Number: JP-BRISTOL-MYERS SQUIBB COMPANY-BMS-2019-020767

PATIENT
  Age: 59 Year
  Sex: Female

DRUGS (1)
  1. OPDIVO [Suspect]
     Active Substance: NIVOLUMAB
     Indication: GASTRIC CANCER
     Dosage: 240 MG, TWICE A MONTH
     Route: 041
     Dates: end: 20190208

REACTIONS (1)
  - Renal tubular necrosis [Unknown]

NARRATIVE: CASE EVENT DATE: 20190222
